FAERS Safety Report 4874551-X (Version None)
Quarter: 2006Q1

REPORT INFORMATION
  Report Type: 
  Country: None (occurrence: None)
  Receive Date: 20060106
  Receipt Date: 20051229
  Transmission Date: 20060701
  Serious: Yes (Hospitalization, Other)
  Sender: FDA-Public Use
  Company Number: IL-AVENTIS-200610071GDDC

PATIENT
  Age: 75 Year
  Sex: Male

DRUGS (2)
  1. GLIBENCLAMIDE [Suspect]
     Indication: DIABETES MELLITUS
  2. CILAZAPRIL [Suspect]
     Indication: HYPERTENSION

REACTIONS (3)
  - ACANTHOLYSIS [None]
  - PEMPHIGUS [None]
  - SKIN ULCER [None]
